FAERS Safety Report 14480093 (Version 3)
Quarter: 2018Q1

REPORT INFORMATION
  Report Type: Report from Study
  Country: JP (occurrence: JP)
  Receive Date: 20180202
  Receipt Date: 20180321
  Transmission Date: 20180509
  Serious: Yes (Hospitalization)
  Sender: FDA-Public Use
  Company Number: JP-ASTRAZENECA-2016SF36115

PATIENT
  Age: 26053 Day
  Sex: Male
  Weight: 61 kg

DRUGS (7)
  1. TAGRISSO [Suspect]
     Active Substance: OSIMERTINIB
     Indication: NON-SMALL CELL LUNG CANCER
     Route: 048
     Dates: start: 20171212, end: 20180123
  2. TAGRISSO [Suspect]
     Active Substance: OSIMERTINIB
     Indication: NON-SMALL CELL LUNG CANCER
     Route: 048
     Dates: start: 20180131, end: 20180214
  3. ASPARA-CA [Concomitant]
     Active Substance: CALCIUM ASPARTATE
     Indication: HYPOCALCAEMIA
     Route: 048
     Dates: start: 20150611
  4. VIBRAMYCIN [Concomitant]
     Active Substance: DOXYCYCLINE
     Indication: SCAR
     Route: 048
     Dates: start: 20150709, end: 20170104
  5. TAGRISSO [Suspect]
     Active Substance: OSIMERTINIB
     Indication: NON-SMALL CELL LUNG CANCER
     Route: 048
     Dates: start: 20161215, end: 20170607
  6. TAGRISSO [Suspect]
     Active Substance: OSIMERTINIB
     Indication: NON-SMALL CELL LUNG CANCER
     Route: 048
     Dates: start: 20170704, end: 20171211
  7. LYRICA [Concomitant]
     Active Substance: PREGABALIN
     Indication: PERIPHERAL NERVE INJURY
     Route: 048
     Dates: start: 20160426, end: 20170104

REACTIONS (6)
  - Muscle spasms [Recovering/Resolving]
  - Metastases to bone [Recovering/Resolving]
  - Blood creatine phosphokinase increased [Recovering/Resolving]
  - Pneumonia haemophilus [Recovering/Resolving]
  - Anaemia [Recovering/Resolving]
  - Myositis [Recovering/Resolving]

NARRATIVE: CASE EVENT DATE: 20140422
